FAERS Safety Report 11829167 (Version 5)
Quarter: 2016Q2

REPORT INFORMATION
  Report Type: Spontaneous
  Country: JP (occurrence: JP)
  Receive Date: 20151211
  Receipt Date: 20160629
  Transmission Date: 20160815
  Serious: Yes (Hospitalization, Disabling, Other)
  Sender: FDA-Public Use
  Company Number: JP-PFIZER INC-2015439119

PATIENT
  Age: 59 Year
  Sex: Female
  Weight: 46.25 kg

DRUGS (1)
  1. XALKORI [Suspect]
     Active Substance: CRIZOTINIB
     Indication: LUNG ADENOCARCINOMA
     Dosage: 250 MG, 2X/DAY
     Route: 048
     Dates: start: 20151028, end: 20160507

REACTIONS (6)
  - Renal cyst [Not Recovered/Not Resolved]
  - Psoas abscess [Recovering/Resolving]
  - Pelvic abscess [Not Recovered/Not Resolved]
  - Bradycardia [Not Recovered/Not Resolved]
  - Pericardial effusion [Not Recovered/Not Resolved]
  - Hepatic cyst [Not Recovered/Not Resolved]

NARRATIVE: CASE EVENT DATE: 20151208
